FAERS Safety Report 5591238-9 (Version None)
Quarter: 2008Q1

REPORT INFORMATION
  Report Type: 
  Country: None (occurrence: None)
  Receive Date: 20080110
  Receipt Date: 20080110
  Transmission Date: 20080703
  Serious: Yes (Hospitalization)
  Sender: FDA-Public Use
  Company Number: None

PATIENT
  Sex: Female
  Weight: 72.5755 kg

DRUGS (1)
  1. METOPROLOL SUCCINATE EXTENDED RELEASE [Suspect]
     Indication: HEART RATE INCREASED
     Dosage: 1/2   25MG  TABLET  ONCE DAILY  BUCCAL
     Route: 002
     Dates: start: 20071201, end: 20071229

REACTIONS (4)
  - ATRIAL FLUTTER [None]
  - DRUG INEFFECTIVE [None]
  - HEART RATE INCREASED [None]
  - THERAPEUTIC RESPONSE UNEXPECTED WITH DRUG SUBSTITUTION [None]
